FAERS Safety Report 8377705-3 (Version None)
Quarter: 2012Q2

REPORT INFORMATION
  Report Type: 
  Country: None (occurrence: None)
  Receive Date: 20120522
  Receipt Date: 20120515
  Transmission Date: 20120825
  Serious: Yes (Other)
  Sender: FDA-Public Use
  Company Number: US-GLAXOSMITHKLINE-A0977883A

PATIENT
  Sex: Female

DRUGS (2)
  1. TYKERB [Suspect]
     Indication: BREAST CANCER
     Dosage: 1000MG PER DAY
     Route: 048
  2. TRASTUZUMAB [Concomitant]

REACTIONS (4)
  - ELECTROLYTE IMBALANCE [None]
  - DIARRHOEA [None]
  - WEIGHT DECREASED [None]
  - ELECTROCARDIOGRAM QT PROLONGED [None]
